FAERS Safety Report 17484563 (Version 1)
Quarter: 2020Q1

REPORT INFORMATION
  Report Type: Spontaneous
  Country: DE (occurrence: DE)
  Receive Date: 20200302
  Receipt Date: 20200302
  Transmission Date: 20200409
  Serious: Yes (Other)
  Sender: FDA-Public Use
  Company Number: DE-MYLANLABS-2020M1021807

PATIENT
  Sex: Female

DRUGS (1)
  1. FLUOROURACIL. [Suspect]
     Active Substance: FLUOROURACIL
     Indication: BREAST CANCER
     Dosage: UNK
     Route: 065
     Dates: start: 201905

REACTIONS (1)
  - Metastases to bone [Unknown]

NARRATIVE: CASE EVENT DATE: 201912
